FAERS Safety Report 12616762 (Version 1)
Quarter: 2016Q3

REPORT INFORMATION
  Report Type: Spontaneous
  Country: US (occurrence: US)
  Receive Date: 20160802
  Receipt Date: 20160802
  Transmission Date: 20161109
  Serious: Yes (Hospitalization, Other)
  Sender: FDA-Public Use
  Company Number: US-AMGEN-USASP2016099430

PATIENT
  Age: 62 Year
  Sex: Male

DRUGS (6)
  1. ETOPOSIDE. [Suspect]
     Active Substance: ETOPOSIDE
     Indication: SMALL CELL LUNG CANCER EXTENSIVE STAGE
     Dosage: 100 MG/M2, UNK, 100 MG/M2/DAY IV OVER 2 HRS ON DAYS 1-3
     Route: 042
     Dates: start: 20100106
  2. CISPLATIN. [Suspect]
     Active Substance: CISPLATIN
     Indication: SMALL CELL LUNG CANCER EXTENSIVE STAGE
     Dosage: 75 MG/M2, UNK, OVER 2 HRS ON DAY 1
     Route: 042
     Dates: start: 20100106
  3. PERCOCET [Concomitant]
     Active Substance: ACETAMINOPHEN\OXYCODONE HYDROCHLORIDE
     Indication: PRODUCT USED FOR UNKNOWN INDICATION
     Dosage: UNK
  4. VISMODEGIB [Suspect]
     Active Substance: VISMODEGIB
     Dosage: 450 MG, UNK, COURSE 2, MOST RECENT DOSE RECEIVED O 29/JAN/2010 (450 MG)
     Route: 048
     Dates: start: 20100127
  5. VISMODEGIB [Suspect]
     Active Substance: VISMODEGIB
     Indication: SMALL CELL LUNG CANCER EXTENSIVE STAGE
     Dosage: 3150 MG, UNK, COURSE 1 (3150 MG)
     Route: 048
     Dates: start: 20100106
  6. PEGFILGRASTIM [Suspect]
     Active Substance: PEGFILGRASTIM
     Indication: PRODUCT USED FOR UNKNOWN INDICATION
     Dosage: 6 MG, ONE TIME DOSE (ONCE)
     Route: 065

REACTIONS (6)
  - Fracture [Unknown]
  - Myalgia [Unknown]
  - Bone pain [Unknown]
  - Arthralgia [Unknown]
  - Dyspnoea [Unknown]
  - Back pain [Unknown]

NARRATIVE: CASE EVENT DATE: 20100129
